FAERS Safety Report 15424823 (Version 1)
Quarter: 2018Q3

REPORT INFORMATION
  Report Type: Spontaneous
  Country: US (occurrence: US)
  Receive Date: 20180917
  Receipt Date: 20180917
  Transmission Date: 20181010
  Serious: No
  Sender: FDA-Public Use
  Company Number: None

PATIENT
  Age: 68 Year
  Sex: Male

DRUGS (1)
  1. REPATHA [Suspect]
     Active Substance: EVOLOCUMAB
     Dates: start: 201807

REACTIONS (2)
  - Blood triglycerides increased [None]
  - Seasonal allergy [None]

NARRATIVE: CASE EVENT DATE: 20180910
